FAERS Safety Report 7825827-5 (Version None)
Quarter: 2011Q4

REPORT INFORMATION
  Report Type: 
  Country: None (occurrence: None)
  Receive Date: 20111019
  Receipt Date: 20111013
  Transmission Date: 20120403
  Serious: Yes (Hospitalization)
  Sender: FDA-Public Use
  Company Number: DE-ROCHE-798390

PATIENT
  Age: 38 Year
  Sex: Female
  Weight: 75 kg

DRUGS (5)
  1. PANTOPRAZOLE SODIUM [Concomitant]
  2. VEMURAFENIB [Suspect]
     Indication: METASTATIC MALIGNANT MELANOMA
     Dosage: LAST DOSE PRIOR TO SAE :21/AUG/2011
     Route: 048
     Dates: start: 20110607, end: 20110821
  3. LEVETIRACETAM [Concomitant]
     Dates: start: 20110223
  4. GABAPENTIN [Concomitant]
     Dates: start: 20110316
  5. LORAZEPAM [Concomitant]
     Dates: start: 20110210

REACTIONS (2)
  - GASTROENTERITIS [None]
  - HERPES ZOSTER [None]
